FAERS Safety Report 4494366-4 (Version None)
Quarter: 2004Q4

REPORT INFORMATION
  Report Type: 
  Country: None (occurrence: None)
  Receive Date: 20041105
  Receipt Date: 20040728
  Transmission Date: 20050328
  Serious: Yes (Hospitalization, Other)
  Sender: FDA-Public Use
  Company Number: US-BRISTOL-MYERS SQUIBB COMPANY-12652806

PATIENT
  Age: 44 Year
  Sex: Female

DRUGS (8)
  1. CARBOPLATIN [Suspect]
     Indication: OVARIAN CANCER
     Dosage: CYCLE 1: 05-MAR-2003; CYCLE 3 DELAYED X 1 WEEK
     Route: 042
     Dates: start: 20030325, end: 20030325
  2. PACLITAXEL [Suspect]
     Indication: OVARIAN CANCER
     Dosage: CYCLE 1: 05-MAR-2003; CYCLE 3 DELAYED X 1 WEEK
     Route: 042
     Dates: start: 20030325, end: 20030325
  3. INTERFERON GAMMA [Suspect]
     Indication: OVARIAN CANCER
     Dosage: THERAPY DATES: 05-MAR TO 06-APR-2003; CYCLE 3 DELAYED X 1 WEEK
     Route: 058
     Dates: start: 20030402
  4. ADVIL [Concomitant]
     Dates: start: 20030305
  5. TYLENOL [Concomitant]
     Dates: start: 20030305
  6. OXAZEPAM [Concomitant]
     Dates: start: 20030319
  7. ATIVAN [Concomitant]
     Dates: start: 20030303
  8. TORADOL [Concomitant]
     Dates: start: 20030301, end: 20030402

REACTIONS (7)
  - ANAEMIA [None]
  - EMPYEMA [None]
  - FACTOR V LEIDEN MUTATION [None]
  - HYPERCOAGULATION [None]
  - LEUKOPENIA [None]
  - NEUTROPENIA [None]
  - PLEURAL EFFUSION [None]
